FAERS Safety Report 8900435 (Version 1)
Quarter: 2012Q4

REPORT INFORMATION
  Report Type: Report from Study
  Country: KR (occurrence: KR)
  Receive Date: 20121109
  Receipt Date: 20121109
  Transmission Date: 20130627
  Serious: Yes (Hospitalization)
  Sender: FDA-Public Use
  Company Number: KR-EISAI INC-E7389-03052-CLI-KR

PATIENT
  Age: 64 Year
  Sex: Male
  Weight: 59 kg

DRUGS (18)
  1. E7389 (BOLD) [Suspect]
     Indication: NON-SMALL CELL LUNG CANCER
     Route: 041
     Dates: start: 20120919, end: 20120919
  2. METFORMIN HCL [Concomitant]
     Indication: DIABETES MELLITUS
     Route: 048
     Dates: start: 20110720
  3. TARGIN [Concomitant]
     Indication: CHEST WALL PAIN
     Route: 048
     Dates: start: 20110907
  4. OXYCODONE HCL [Concomitant]
     Indication: CHEST WALL PAIN
     Route: 048
     Dates: start: 20110911
  5. CARBOXYMETHYLCYSTEINE [Concomitant]
     Indication: COUGH
     Route: 048
     Dates: start: 20111023
  6. MEGESTROL ACETATE [Concomitant]
     Indication: ANOREXIA
     Route: 048
     Dates: start: 20120303
  7. ERDOSTEINE [Concomitant]
     Indication: COUGH
     Route: 048
     Dates: start: 20120725
  8. FERROUS SULFATE [Concomitant]
     Indication: IRON SUPPLEMENTATION
     Route: 048
     Dates: start: 20120725
  9. FERROUS SULFATE [Concomitant]
     Route: 048
     Dates: start: 20120919
  10. MOSAPRIDE CITRATE [Concomitant]
     Indication: GASTRITIS PROPHYLAXIS
     Route: 048
     Dates: start: 20120730
  11. BENPROPERINE PHOSPHATE [Concomitant]
     Indication: COUGH
     Route: 048
     Dates: start: 20110907
  12. DEXAMETHASONE SODIUM PHOSPHATE [Concomitant]
     Indication: PREMEDICATION
     Route: 042
     Dates: start: 20120912, end: 20120912
  13. CHLORPHENIRAMINE MALEATE [Concomitant]
     Indication: PREMEDICATION
     Route: 042
     Dates: start: 20120912, end: 20120912
  14. ACETAMINOPHEN [Concomitant]
     Indication: FEVER
     Route: 048
     Dates: start: 20120914, end: 20120914
  15. ACETAMINOPHEN [Concomitant]
     Route: 048
     Dates: start: 20120916, end: 20120916
  16. ACETAMINOPHEN [Concomitant]
     Route: 048
     Dates: start: 20120918, end: 20120918
  17. DARBEPOETIN ALPHA [Concomitant]
     Indication: ANAEMIA PROPHYLAXIS
     Route: 048
     Dates: start: 20120919, end: 20120919
  18. ATORVASTATIN CALCIUM [Concomitant]
     Indication: HYPERLIPIDEMIA
     Route: 048
     Dates: start: 20120225

REACTIONS (1)
  - Lung infection [Recovered/Resolved]
